FAERS Safety Report 9143723 (Version 1)
Quarter: 2013Q1

REPORT INFORMATION
  Report Type: Spontaneous
  Country: CH (occurrence: CH)
  Receive Date: 20130306
  Receipt Date: 20130306
  Transmission Date: 20140127
  Serious: Yes (Other)
  Sender: FDA-Public Use
  Company Number: CH-ROCHE-1197766

PATIENT
  Sex: Male

DRUGS (2)
  1. MABTHERA [Suspect]
     Indication: RHEUMATOID ARTHRITIS
     Route: 042
     Dates: start: 201205
  2. MABTHERA [Suspect]
     Route: 042
     Dates: start: 201212

REACTIONS (2)
  - Pericarditis [Recovering/Resolving]
  - Dyspnoea [Recovering/Resolving]
